FAERS Safety Report 8380781-5 (Version None)
Quarter: 2012Q2

REPORT INFORMATION
  Report Type: 
  Country: None (occurrence: None)
  Receive Date: 20120523
  Receipt Date: 20120515
  Transmission Date: 20120825
  Serious: Yes (Death)
  Sender: FDA-Public Use
  Company Number: US-ROCHE-1070267

PATIENT
  Age: 29 Year
  Sex: Male

DRUGS (4)
  1. NORDIAZEPAM [Suspect]
     Indication: PRODUCT USED FOR UNKNOWN INDICATION
  2. CODEINE SULFATE [Suspect]
     Indication: PRODUCT USED FOR UNKNOWN INDICATION
  3. VALIUM [Suspect]
     Indication: PRODUCT USED FOR UNKNOWN INDICATION
  4. DILTIAZEM [Suspect]
     Indication: PRODUCT USED FOR UNKNOWN INDICATION

REACTIONS (1)
  - ACCIDENTAL DEATH [None]
